FAERS Safety Report 7773918-X (Version None)
Quarter: 2011Q3

REPORT INFORMATION
  Report Type: 
  Country: None (occurrence: None)
  Receive Date: 20110923
  Receipt Date: 20110916
  Transmission Date: 20111222
  Serious: Yes (Other)
  Sender: FDA-Public Use
  Company Number: US-AMGEN-USASP2011046260

PATIENT
  Age: 52 Year
  Sex: Female
  Weight: 104.49 kg

DRUGS (8)
  1. SEROQUEL [Suspect]
  2. NPLATE [Suspect]
     Indication: THROMBOCYTOPENIA
     Dosage: 1 MUG/KG, UNK
     Route: 058
     Dates: start: 20110408, end: 20110616
  3. CYANOCOBALAMIN [Concomitant]
     Indication: HYPOVITAMINOSIS
     Dosage: 1000 MG, QWK
     Route: 030
     Dates: start: 20110104
  4. FEMARA [Concomitant]
     Indication: BREAST CANCER
     Dosage: 2.5 MG, QD
     Route: 048
  5. POTASSIUM [Concomitant]
     Dosage: 20 MEQ, QD
     Route: 048
  6. ZOLOFT [Concomitant]
  7. PROPRANOLOL [Concomitant]
     Dosage: 20 MG, QD
     Route: 048
  8. CELEBREX [Concomitant]
     Indication: ARTHRITIS
     Dosage: 200 MG, BID
     Route: 048

REACTIONS (2)
  - PLATELET COUNT DECREASED [None]
  - DRUG INEFFECTIVE [None]
